FAERS Safety Report 4301541-8 (Version None)
Quarter: 2004Q1

REPORT INFORMATION
  Report Type: 
  Country: None (occurrence: None)
  Receive Date: 20040219
  Receipt Date: 20040210
  Transmission Date: 20041129
  Serious: Yes (Hospitalization)
  Sender: FDA-Public Use
  Company Number: 163-20785-04010625

PATIENT
  Age: 63 Year
  Sex: Male
  Weight: 84 kg

DRUGS (12)
  1. THALOMID [Suspect]
     Indication: RENAL CANCER METASTATIC
     Dosage: 100 MG, DAILY, ORAL
     Route: 048
     Dates: start: 20031103, end: 20031118
  2. THALOMID [Suspect]
     Indication: RENAL CANCER METASTATIC
     Dosage: 100 MG, DAILY, ORAL
     Route: 048
     Dates: start: 20031201, end: 20031231
  3. INTERLEUKIN-2 (INTERLEUKIN-2) (UNKNOWN) [Suspect]
     Indication: RENAL CANCER METASTATIC
     Dosage: 18 MIU, M-F X 6WKS, SUBCUTANEOUS; 13.5 MIU, M-F X 2WKS, SUBCUTANEOUS;  13.5 MIU, M-F X 6WKS, SUBCUTA
     Route: 058
     Dates: start: 20031113, end: 20031118
  4. INTERLEUKIN-2 (INTERLEUKIN-2) (UNKNOWN) [Suspect]
     Indication: RENAL CANCER METASTATIC
     Dosage: 18 MIU, M-F X 6WKS, SUBCUTANEOUS; 13.5 MIU, M-F X 2WKS, SUBCUTANEOUS;  13.5 MIU, M-F X 6WKS, SUBCUTA
     Route: 058
     Dates: start: 20031201, end: 20031212
  5. INTERLEUKIN-2 (INTERLEUKIN-2) (UNKNOWN) [Suspect]
     Indication: RENAL CANCER METASTATIC
     Dosage: 18 MIU, M-F X 6WKS, SUBCUTANEOUS; 13.5 MIU, M-F X 2WKS, SUBCUTANEOUS;  13.5 MIU, M-F X 6WKS, SUBCUTA
     Route: 058
     Dates: start: 20040105, end: 20040116
  6. BEXTRA [Concomitant]
  7. ZYRTEC [Concomitant]
  8. CLARITIN [Concomitant]
  9. PERCOCET 5/325 (OXYCOCET) [Concomitant]
  10. PEPCID [Concomitant]
  11. COZAAR [Suspect]
  12. ZOCOR [Concomitant]

REACTIONS (49)
  - ACTIVATED PARTIAL THROMBOPLASTIN TIME PROLONGED [None]
  - ALBUMIN CSF INCREASED [None]
  - ANAEMIA [None]
  - ASPARTATE AMINOTRANSFERASE INCREASED [None]
  - ASTHENIA [None]
  - BLOOD CALCIUM DECREASED [None]
  - BLOOD CREATINE PHOSPHOKINASE MB INCREASED [None]
  - BLOOD CREATININE INCREASED [None]
  - BLOOD GLUCOSE INCREASED [None]
  - BLOOD LACTATE DEHYDROGENASE INCREASED [None]
  - BLOOD TRIGLYCERIDES INCREASED [None]
  - BLOOD URIC ACID DECREASED [None]
  - C-REACTIVE PROTEIN INCREASED [None]
  - CEREBRAL ISCHAEMIA [None]
  - CHEST PAIN [None]
  - CHILLS [None]
  - CULTURE URINE POSITIVE [None]
  - DEHYDRATION [None]
  - DIASTOLIC DYSFUNCTION [None]
  - DISEASE PROGRESSION [None]
  - DIZZINESS [None]
  - EJECTION FRACTION DECREASED [None]
  - ELECTROCARDIOGRAM QT CORRECTED INTERVAL PROLONGED [None]
  - ELECTROCARDIOGRAM ST SEGMENT DEPRESSION [None]
  - ELECTROCARDIOGRAM ST-T CHANGE [None]
  - ELECTROCARDIOGRAM T WAVE ABNORMAL [None]
  - ENTEROCOCCAL INFECTION [None]
  - EOSINOPHIL COUNT INCREASED [None]
  - FEELING ABNORMAL [None]
  - GAIT DISTURBANCE [None]
  - HAEMATOCRIT DECREASED [None]
  - HAEMOGLOBIN DECREASED [None]
  - HIGH DENSITY LIPOPROTEIN DECREASED [None]
  - HYPONATRAEMIA [None]
  - LYMPHOCYTE COUNT DECREASED [None]
  - MENTAL STATUS CHANGES [None]
  - MONOCYTE COUNT INCREASED [None]
  - MYOCARDIAL INFARCTION [None]
  - NEUTROPHIL COUNT INCREASED [None]
  - PCO2 DECREASED [None]
  - RASH PRURITIC [None]
  - RED BLOOD CELL COUNT DECREASED [None]
  - RED BLOOD CELL SEDIMENTATION RATE INCREASED [None]
  - RENAL FAILURE ACUTE [None]
  - SINUS TACHYCARDIA [None]
  - STAPHYLOCOCCAL INFECTION [None]
  - TROPONIN T INCREASED [None]
  - VOMITING [None]
  - WHITE BLOOD CELL COUNT INCREASED [None]
